FAERS Safety Report 16601872 (Version 1)
Quarter: 2019Q3

REPORT INFORMATION
  Report Type: Spontaneous
  Country: US (occurrence: US)
  Receive Date: 20190719
  Receipt Date: 20190719
  Transmission Date: 20191004
  Serious: Yes (Other)
  Sender: FDA-Public Use
  Company Number: PHEH2019US028793

PATIENT
  Sex: Female

DRUGS (1)
  1. OMEPRAZOLE. [Suspect]
     Active Substance: OMEPRAZOLE
     Indication: PRODUCT USED FOR UNKNOWN INDICATION
     Dosage: 20 MG, QD
     Route: 065

REACTIONS (8)
  - Atrial fibrillation [Unknown]
  - Dizziness [Unknown]
  - Hypoaesthesia [Unknown]
  - Vertigo [Unknown]
  - Hypotension [Unknown]
  - Fatigue [Unknown]
  - Tremor [Unknown]
  - Muscular weakness [Unknown]
